FAERS Safety Report 10261494 (Version 1)
Quarter: 2014Q2

REPORT INFORMATION
  Report Type: Spontaneous
  Country: PL (occurrence: PL)
  Receive Date: 20140626
  Receipt Date: 20140626
  Transmission Date: 20141212
  Serious: Yes (Other)
  Sender: FDA-Public Use
  Company Number: PL-JNJFOC-20140612360

PATIENT
  Age: 41 Year
  Sex: Male

DRUGS (4)
  1. ABCIXIMAB [Suspect]
     Indication: CORONARY ANGIOPLASTY
     Route: 065
  2. ASPIRIN [Suspect]
     Indication: ANTIPLATELET THERAPY
     Route: 065
  3. CLOPIDOGREL [Suspect]
     Indication: ANTIPLATELET THERAPY
     Route: 065
  4. UNFRACTIONATED HEPARIN [Suspect]
     Indication: THROMBOSIS
     Route: 065

REACTIONS (3)
  - Conjunctival haemorrhage [Unknown]
  - Tongue haematoma [Unknown]
  - Mucosal haemorrhage [Unknown]
